FAERS Safety Report 18499231 (Version 1)
Quarter: 2020Q4

REPORT INFORMATION
  Report Type: Report from Study
  Country: US (occurrence: US)
  Receive Date: 20201112
  Receipt Date: 20201112
  Transmission Date: 20210114
  Serious: Yes (Hospitalization)
  Sender: FDA-Public Use
  Company Number: US-JNJFOC-A-NJ2020-206695

PATIENT
  Age: 43 Year
  Sex: Female
  Weight: 75.82 kg

DRUGS (10)
  1. VELETRI [Suspect]
     Active Substance: EPOPROSTENOL
     Indication: PULMONARY HYPERTENSION
     Dosage: 40 NG/KG, PER MIN
     Route: 042
  2. OPSUMIT [Suspect]
     Active Substance: MACITENTAN
     Indication: PULMONARY HYPERTENSION
     Dosage: 10 MG, QD
     Route: 048
  3. VELETRI [Suspect]
     Active Substance: EPOPROSTENOL
     Dosage: 30 NG/KG, PER MIN
     Route: 042
  4. VELETRI [Suspect]
     Active Substance: EPOPROSTENOL
     Dosage: 34 NG/KG, PER MIN
     Route: 042
  5. SILDENAFIL CITRATE. [Concomitant]
     Active Substance: SILDENAFIL CITRATE
  6. VELETRI [Suspect]
     Active Substance: EPOPROSTENOL
     Dosage: UNK
     Route: 042
  7. VELETRI [Suspect]
     Active Substance: EPOPROSTENOL
     Route: 042
  8. REMODULIN [Concomitant]
     Active Substance: TREPROSTINIL
  9. OXYGEN. [Concomitant]
     Active Substance: OXYGEN
  10. VELETRI [Suspect]
     Active Substance: EPOPROSTENOL
     Dosage: 32 NG/KG, PER MIN
     Route: 042

REACTIONS (12)
  - Catheter site rash [Unknown]
  - Catheter site pruritus [Unknown]
  - Dyspnoea exertional [Recovering/Resolving]
  - Fatigue [Unknown]
  - Therapy change [Unknown]
  - Diarrhoea [Unknown]
  - Pain in jaw [Unknown]
  - Malaise [Unknown]
  - Device related infection [Unknown]
  - Headache [Unknown]
  - Catheter site vesicles [Unknown]
  - Dyspnoea [Unknown]
